FAERS Safety Report 6572886-6 (Version None)
Quarter: 2010Q1

REPORT INFORMATION
  Report Type: 
  Country: None (occurrence: None)
  Receive Date: 20100207
  Receipt Date: 20100201
  Transmission Date: 20100710
  Serious: Yes (Hospitalization)
  Sender: FDA-Public Use
  Company Number: DE-MERCK-1002DEU00004

PATIENT
  Age: 63 Year
  Sex: Female
  Weight: 86 kg

DRUGS (10)
  1. ZOCOR [Suspect]
     Indication: HYPERLIPIDAEMIA
     Route: 048
     Dates: start: 20000101
  2. VALPROIC ACID [Suspect]
     Indication: BIPOLAR DISORDER
     Route: 048
     Dates: start: 20080820, end: 20080911
  3. VALPROIC ACID [Suspect]
     Indication: DEPRESSION
     Route: 048
     Dates: start: 20080820, end: 20080911
  4. EQUILIN SODIUM SULFATE AND ESTRONE SODIUM SULFATE [Suspect]
     Indication: HORMONE REPLACEMENT THERAPY
     Route: 048
     Dates: start: 20040101, end: 20080911
  5. ASPIRIN [Concomitant]
     Indication: CORONARY ARTERY DISEASE
     Route: 048
     Dates: start: 20010101
  6. LISINOPRIL [Concomitant]
     Indication: HYPERTENSION
     Route: 048
     Dates: start: 20010101
  7. BISOPROLOL [Concomitant]
     Indication: HYPERTENSION
     Route: 048
     Dates: start: 19950101
  8. AMITRIPTYLINE HYDROCHLORIDE [Suspect]
     Indication: DEPRESSION
     Route: 048
     Dates: start: 20040101, end: 20080819
  9. BECLOMETHASONE DIPROPIONATE [Concomitant]
     Indication: ASTHMA
     Route: 055
     Dates: start: 20050101
  10. INFLUENZA VIRUS SPLIT VIRION 3V VACCINE INACTIVATED [Concomitant]
     Indication: INFLUENZA IMMUNISATION
     Route: 058
     Dates: start: 20080908, end: 20080908

REACTIONS (1)
  - LIVER INJURY [None]
